FAERS Safety Report 14394041 (Version 1)
Quarter: 2018Q1

REPORT INFORMATION
  Report Type: Spontaneous
  Country: US (occurrence: US)
  Receive Date: 20180116
  Receipt Date: 20180116
  Transmission Date: 20180509
  Serious: No
  Sender: FDA-Public Use
  Company Number: US-REGENERON PHARMACEUTICALS, INC.-2017-23251

PATIENT

DRUGS (1)
  1. EYLEA [Suspect]
     Active Substance: AFLIBERCEPT
     Indication: DIABETIC RETINAL OEDEMA
     Dosage: FIRST AND ONLY DOSE
     Dates: start: 20170906, end: 20170906

REACTIONS (1)
  - Eye pain [Recovering/Resolving]

NARRATIVE: CASE EVENT DATE: 20170906
